FAERS Safety Report 10072389 (Version 1)
Quarter: 2014Q2

REPORT INFORMATION
  Report Type: Spontaneous
  Country: US (occurrence: US)
  Receive Date: 20140411
  Receipt Date: 20140411
  Transmission Date: 20141212
  Serious: Yes (Hospitalization, Other)
  Sender: FDA-Public Use
  Company Number: US-ELI_LILLY_AND_COMPANY-US201404000406

PATIENT
  Age: 59 Year
  Sex: Female

DRUGS (4)
  1. HUMALOG LISPRO [Suspect]
     Indication: TYPE 1 DIABETES MELLITUS
     Dosage: 1.5 DF, OTHER
     Route: 058
     Dates: start: 2003
  2. ATACAND [Concomitant]
     Indication: RENAL DISORDER
     Dosage: 16 MG, UNK
  3. FISH OIL [Concomitant]
  4. BABY ASPIRIN [Concomitant]

REACTIONS (3)
  - Cerebral haemorrhage [Unknown]
  - Diabetic ketoacidosis [Unknown]
  - Drug ineffective [Unknown]
